FAERS Safety Report 13496326 (Version 6)
Quarter: 2019Q3

REPORT INFORMATION
  Report Type: Spontaneous
  Country: US (occurrence: US)
  Receive Date: 20170428
  Receipt Date: 20190918
  Transmission Date: 20191004
  Serious: Yes (Other)
  Sender: FDA-Public Use
  Company Number: US-PFIZER INC-2017042210

PATIENT
  Age: 72 Year
  Sex: Female
  Weight: 116.55 kg

DRUGS (38)
  1. VICTOZA [Concomitant]
     Active Substance: LIRAGLUTIDE
     Indication: DIABETES MELLITUS
     Dosage: 1.2 MG, DAILY (INJECT 1.2 MG INTO THE SKIN DAILY)(ONE SHOT A DAY)
     Route: 062
  2. SINGULAIR [Concomitant]
     Active Substance: MONTELUKAST SODIUM
     Dosage: 10 MG, DAILY
     Route: 048
  3. MONTELUKAST [Concomitant]
     Active Substance: MONTELUKAST SODIUM
     Indication: ASTHMA
     Dosage: 10 MG, 1X/DAY
     Route: 048
  4. GLIMEPIRIDE. [Concomitant]
     Active Substance: GLIMEPIRIDE
     Indication: DIABETES MELLITUS
     Dosage: 1 DF, 1X/DAY (AM)
  5. VITAMIN D3 [Concomitant]
     Active Substance: CHOLECALCIFEROL
     Dosage: 1000 IU, DAILY
     Route: 048
  6. KRILL OIL [Concomitant]
     Active Substance: DIETARY SUPPLEMENT\KRILL OIL
     Dosage: 350 MG, UNK
     Route: 048
  7. VICTOZA [Concomitant]
     Active Substance: LIRAGLUTIDE
     Dosage: 1.8 MG, 1X/DAY
  8. METFORMIN [Concomitant]
     Active Substance: METFORMIN HYDROCHLORIDE
     Dosage: UNK (ONE IN THE MORNING AND ONE IN THE EVENING)
  9. HYDROXYZINE [Concomitant]
     Active Substance: HYDROXYZINE HYDROCHLORIDE
     Indication: URTICARIA
     Dosage: 25 MG, 3X/DAY (MORE IF NEEDED)
     Route: 048
  10. HYDROXYZINE [Concomitant]
     Active Substance: HYDROXYZINE HYDROCHLORIDE
     Dosage: 2 DF, 1X/DAY (AT NIGHT)
  11. MELOXICAM. [Concomitant]
     Active Substance: MELOXICAM
     Indication: ARTHRITIS
     Dosage: 15 MG, 1X/DAY
  12. CALCIUM CARBONATE/COLECALCIFEROL/MAGNESIUM OXIDE [Concomitant]
     Dosage: 1 DF, 2X/DAY [CALCIUM CARBONATE: 400 MG] [MAGNESIUM OXIDE: 167] [COLECALCIFEROL: 133 MG]
     Route: 048
  13. CITRACAL +  D3,  CALCIUM PHOS [Concomitant]
     Dosage: 250 MG, MOUTH 3 TIMES WEEKLY
     Route: 048
  14. COENZYME Q10 [Concomitant]
     Active Substance: UBIDECARENONE
     Dosage: 60 MG, UNK
     Route: 048
  15. CARDIZEM CD [Concomitant]
     Active Substance: DILTIAZEM HYDROCHLORIDE
     Dosage: 240 MG, DAILY
     Route: 048
  16. ALLEGRA [Concomitant]
     Active Substance: FEXOFENADINE HYDROCHLORIDE
     Dosage: 180 MG, DAILY
     Route: 048
  17. ATARAX [Concomitant]
     Active Substance: HYDROXYZINE HYDROCHLORIDE
     Indication: PRURITUS
     Dosage: 25 MG, AS NEEDED (THREE TIMES DAILY AS NEEDED )
     Route: 048
  18. HYZAAR [Concomitant]
     Active Substance: HYDROCHLOROTHIAZIDE\LOSARTAN POTASSIUM
     Dosage: 1 DF, DAILY[LOSARTAN: 100 MG] [HYDROCHLOROTHIAZIDE: 25 MG]
     Route: 048
  19. METROGEL [Concomitant]
     Active Substance: METRONIDAZOLE
     Indication: ROSACEA
     Dosage: UNK UNK, 1X/DAY
  20. PULMICORT TURBUHALER [Concomitant]
     Active Substance: BUDESONIDE
     Dosage: UNK, DAILY (TWO PUFFS A DAY)
  21. GLUCOPHAGE XR [Concomitant]
     Active Substance: METFORMIN HYDROCHLORIDE
     Dosage: 500 MG, 2X/DAY
     Route: 048
  22. CLOBETASOL PROPIONATE. [Concomitant]
     Active Substance: CLOBETASOL PROPIONATE
     Indication: HAND DERMATITIS
     Dosage: UNK
  23. GENOTROPIN MQ [Suspect]
     Active Substance: SOMATROPIN
     Dosage: 0.4 MG, DAILY
     Dates: start: 201108
  24. GLIMEPIRIDE. [Concomitant]
     Active Substance: GLIMEPIRIDE
     Dosage: UNK, DAILY (TAKING IT HALF A DAY)
  25. ECOTRIN [Concomitant]
     Active Substance: ASPIRIN
     Dosage: 81 MG, UNK (EVERY MONDAY, WEDNESDAY, FRIDAY)
     Route: 048
  26. PULMICORT TURBUHALER [Concomitant]
     Active Substance: BUDESONIDE
     Indication: HYPERSENSITIVITY
     Dosage: 90 UG, UNK
  27. SOMATROPIN. [Concomitant]
     Active Substance: SOMATROPIN
     Dosage: 0.25 UG, DAILY
     Route: 058
  28. METFORMIN [Concomitant]
     Active Substance: METFORMIN HYDROCHLORIDE
     Indication: DIABETES MELLITUS
     Dosage: 500 MG, 2X/DAY
     Route: 048
  29. DILTIAZEM CD [Concomitant]
     Active Substance: DILTIAZEM
     Indication: HYPERTENSION
     Dosage: 240 MG, 1X/DAY
  30. LOSARTAN. [Concomitant]
     Active Substance: LOSARTAN
     Indication: HYPERTENSION
     Dosage: UNK UNK, 1X/DAY (100MG-25MG)
  31. GENOTROPIN MQ [Suspect]
     Active Substance: SOMATROPIN
     Indication: GROWTH HORMONE DEFICIENCY
     Dosage: 0.2 MG, DAILY
     Dates: start: 2008
  32. PEPCID [Concomitant]
     Active Substance: FAMOTIDINE
     Dosage: 20 MG, 2X/DAY
     Route: 048
  33. ALLEGRA [Concomitant]
     Active Substance: FEXOFENADINE HYDROCHLORIDE
     Dosage: 180 MG, 1X/DAY
  34. POTASSIUM [Concomitant]
     Active Substance: POTASSIUM
     Dosage: 99 MG, 1X/DAY
     Route: 048
  35. ZOCOR [Concomitant]
     Active Substance: SIMVASTATIN
     Dosage: 20 MG, 1X/DAY (TAKE 20 MG BY MOUTH EVERY EVENING)
     Route: 048
  36. FISH OIL OMEGA 3 [Concomitant]
     Active Substance: FISH OIL
     Dosage: 500 MG, DAILY (T500-100 MG CAP; AKE 500 MG BY MOUTH DAILY)
     Route: 048
  37. BOSWELLIA SERRATA W/COLECALCIFEROL/GLUCOSAMIN [Concomitant]
     Dosage: 1 DF, 2X/DAY[GLUCOSAMINE: 1500 MG][COLECALCIFEROL: 400 UNIT][BOSWELLIA SERRATA: 100MG]
  38. SIMVASTATIN. [Concomitant]
     Active Substance: SIMVASTATIN
     Indication: BLOOD CHOLESTEROL ABNORMAL
     Dosage: 10 MG, 1X/DAY

REACTIONS (19)
  - Insomnia [Unknown]
  - Weight increased [Unknown]
  - Alopecia [Unknown]
  - Urinary incontinence [Unknown]
  - Increased tendency to bruise [Unknown]
  - Temperature intolerance [Unknown]
  - Nasopharyngitis [Unknown]
  - Musculoskeletal stiffness [Unknown]
  - Dry skin [Unknown]
  - Intentional product misuse [Unknown]
  - Product prescribing error [Unknown]
  - Diabetes mellitus inadequate control [Unknown]
  - Swelling [Unknown]
  - Arthralgia [Unknown]
  - Fatigue [Unknown]
  - Dyspepsia [Unknown]
  - Hyperhidrosis [Unknown]
  - Asthenia [Unknown]
  - Body height decreased [Unknown]

NARRATIVE: CASE EVENT DATE: 20161125
